FAERS Safety Report 6859434-8 (Version None)
Quarter: 2010Q3

REPORT INFORMATION
  Report Type: 
  Country: None (occurrence: None)
  Receive Date: 20100719
  Receipt Date: 20080225
  Transmission Date: 20110219
  Serious: Yes (Other)
  Sender: FDA-Public Use
  Company Number: US-PFIZER INC-2008019419

PATIENT
  Sex: Male
  Weight: 120 kg

DRUGS (1)
  1. CHANTIX [Suspect]
     Indication: SMOKING CESSATION THERAPY
     Dates: start: 20080131

REACTIONS (11)
  - ABNORMAL DREAMS [None]
  - ANXIETY [None]
  - DEPRESSED MOOD [None]
  - EUPHORIC MOOD [None]
  - FEELING GUILTY [None]
  - INCREASED APPETITE [None]
  - MENTAL DISORDER [None]
  - MOOD ALTERED [None]
  - NERVOUSNESS [None]
  - PSYCHOTIC DISORDER [None]
  - SOMNOLENCE [None]
